FAERS Safety Report 8248088-4 (Version None)
Quarter: 2012Q1

REPORT INFORMATION
  Report Type: 
  Country: None (occurrence: None)
  Receive Date: 20120330
  Receipt Date: 20120321
  Transmission Date: 20120608
  Serious: Yes (Other)
  Sender: FDA-Public Use
  Company Number: CA-JNJFOC-20111207628

PATIENT
  Sex: Female
  Weight: 67 kg

DRUGS (7)
  1. VITAMIN D [Concomitant]
     Route: 048
  2. BENADRYL [Concomitant]
     Indication: PREMEDICATION
     Route: 065
  3. REMICADE [Suspect]
     Dosage: 8/52
     Route: 042
     Dates: start: 20071101
  4. DOMPERIDONE [Concomitant]
     Indication: LACTATION DISORDER
     Route: 048
  5. FERROMAX [Concomitant]
     Route: 048
  6. MICRONOR [Concomitant]
     Route: 065
  7. REMICADE [Suspect]
     Indication: CROHN'S DISEASE
     Dosage: REMICADE PROTOCOL FOLLOWED WITH RATES OF INCREASE 10,20,40,80,100,125 ETC
     Route: 042
     Dates: start: 20120321

REACTIONS (2)
  - CAESAREAN SECTION [None]
  - MATERNAL EXPOSURE DURING PREGNANCY [None]
